FAERS Safety Report 4717354-9 (Version None)
Quarter: 2005Q3

REPORT INFORMATION
  Report Type: 
  Country: None (occurrence: None)
  Receive Date: 20050715
  Receipt Date: 20050628
  Transmission Date: 20060218
  Serious: Yes (Hospitalization)
  Sender: FDA-Public Use
  Company Number: WAES 0505USA01703

PATIENT
  Age: 79 Year
  Sex: Female
  Weight: 43.9989 kg

DRUGS (24)
  1. CLINORIL [Suspect]
     Dates: start: 20030801
  2. IMURAN [Suspect]
     Dates: start: 20030801
  3. TRACLEER [Suspect]
     Indication: PULMONARY HYPERTENSION
     Dosage: SEE IMAGE
     Route: 048
     Dates: start: 20031002, end: 20031104
  4. TRACLEER [Suspect]
     Indication: PULMONARY HYPERTENSION
     Dosage: SEE IMAGE
     Route: 048
     Dates: start: 20031105, end: 20050401
  5. TRACLEER [Suspect]
     Indication: PULMONARY HYPERTENSION
     Dosage: SEE IMAGE
     Route: 048
     Dates: start: 20050503
  6. METHOTREXATE [Suspect]
     Dosage: 2.5 MG/3XW; UNK
     Dates: start: 19870101, end: 20020101
  7. NAPROSYN [Suspect]
  8. CIALIS [Concomitant]
  9. COUMADIN [Concomitant]
  10. LANOXIN [Concomitant]
  11. LASIX (FUROMSEMIDE) [Concomitant]
  12. PREVACID [Concomitant]
  13. SYNTHROID [Concomitant]
  14. TYLENOL [Concomitant]
  15. ASCORBIC ACID [Concomitant]
  16. CALCIUM (UNSPECIFIED) [Concomitant]
  17. ERGOCALCIFEROL [Concomitant]
  18. FOLIC ACID [Concomitant]
  19. GABAPENTIN [Concomitant]
  20. LORAZEPAM [Concomitant]
  21. NIFEDIPINE [Concomitant]
  22. VITAMIN A [Concomitant]
  23. VITAMIN B (UNSPECIFIED) [Concomitant]
  24. VITAMIN E [Concomitant]

REACTIONS (8)
  - ASCITES [None]
  - AUTOIMMUNE HEPATITIS [None]
  - CRYPTOGENIC CIRRHOSIS [None]
  - DIARRHOEA [None]
  - HEPATIC CIRRHOSIS [None]
  - HEPATIC NEOPLASM [None]
  - LACTOSE INTOLERANCE [None]
  - PANCREATITIS ACUTE [None]
